FAERS Safety Report 6526913-2 (Version None)
Quarter: 2009Q4

REPORT INFORMATION
  Report Type: 
  Country: None (occurrence: None)
  Receive Date: 20091229
  Receipt Date: 20091214
  Transmission Date: 20100525
  Serious: Yes (Other)
  Sender: FDA-Public Use
  Company Number: PHBS2005ES01283

PATIENT
  Sex: Female

DRUGS (1)
  1. VISUDYNE [Suspect]
     Dosage: NI
     Route: 065

REACTIONS (3)
  - ARRHYTHMIA [None]
  - CONDITION AGGRAVATED [None]
  - HEADACHE [None]
